FAERS Safety Report 8116360-4 (Version None)
Quarter: 2012Q1

REPORT INFORMATION
  Report Type: 
  Country: None (occurrence: None)
  Receive Date: 20120206
  Receipt Date: 20120127
  Transmission Date: 20120608
  Serious: Yes (Hospitalization, Other)
  Sender: FDA-Public Use
  Company Number: US-VIIV HEALTHCARE LIMITED-B0723678A

PATIENT
  Age: 39 Year
  Sex: Male
  Weight: 79.5 kg

DRUGS (8)
  1. MARAVIROC [Suspect]
     Indication: HIV INFECTION
     Dosage: 300MG TWICE PER DAY
     Route: 048
     Dates: start: 20100706
  2. TRUVADA [Suspect]
     Indication: HIV INFECTION
     Route: 048
     Dates: start: 20100706
  3. ZOSYN [Concomitant]
     Indication: INFECTION
     Dosage: 4.5G THREE TIMES PER DAY
     Route: 048
     Dates: start: 20110522
  4. ARMODAFINIL [Concomitant]
     Indication: CANDIDIASIS
     Dosage: 200MG PER DAY
     Route: 048
     Dates: start: 20110522
  5. VANCOCIN HYDROCHLORIDE [Concomitant]
     Indication: INFECTION
     Dosage: 1G TWICE PER DAY
     Route: 042
     Dates: start: 20110522
  6. ZITHROMAX [Concomitant]
     Indication: PROPHYLAXIS
     Dosage: 1200MG WEEKLY
     Route: 048
     Dates: start: 20110524
  7. PIPERACILLIN [Concomitant]
  8. BACTROBAN [Concomitant]
     Indication: INFECTION
     Route: 061
     Dates: start: 20110523

REACTIONS (3)
  - LUNG NEOPLASM [None]
  - EXTERNAL EAR CELLULITIS [None]
  - NEUTROPENIA [None]
